FAERS Safety Report 25730791 (Version 1)
Quarter: 2025Q3

REPORT INFORMATION
  Report Type: Spontaneous
  Country: US (occurrence: None)
  Receive Date: 20250827
  Receipt Date: 20250827
  Transmission Date: 20251021
  Serious: Yes (Death)
  Sender: FDA-CTU
  Company Number: None

PATIENT
  Age: 84 Year
  Sex: Male

DRUGS (1)
  1. PEMBROLIZUMAB [Suspect]
     Active Substance: PEMBROLIZUMAB
     Indication: Myositis
     Dates: start: 20250310, end: 20250404

REACTIONS (9)
  - Myositis [None]
  - Incontinence [None]
  - Balance disorder [None]
  - Dyspnoea [None]
  - Hyperglycaemia [None]
  - Myasthenia gravis [None]
  - Myocarditis [None]
  - Respiratory failure [None]
  - Carbon dioxide increased [None]

NARRATIVE: CASE EVENT DATE: 20250501
